FAERS Safety Report 4561788-2 (Version None)
Quarter: 2005Q1

REPORT INFORMATION
  Report Type: 
  Country: None (occurrence: None)
  Receive Date: 20050125
  Receipt Date: 20050112
  Transmission Date: 20050727
  Serious: Yes (Hospitalization, Congenital Anomaly)
  Sender: FDA-Public Use
  Company Number: 2005012505

PATIENT
  Age: 77 Year
  Sex: Female
  Weight: 57.1532 kg

DRUGS (1)
  1. CELEBREX [Suspect]
     Indication: PAIN
     Dosage: 200 MG, DAILY AS NEEDED, ORAL
     Route: 048
     Dates: start: 20031008, end: 20040601

REACTIONS (1)
  - ULCER HAEMORRHAGE [None]
